FAERS Safety Report 5704596-9 (Version None)
Quarter: 2008Q2

REPORT INFORMATION
  Report Type: 
  Country: None (occurrence: None)
  Receive Date: 20080409
  Receipt Date: 20080331
  Transmission Date: 20081010
  Serious: Yes (Hospitalization)
  Sender: FDA-Public Use
  Company Number: 2006JP002382

PATIENT
  Age: 72 Year
  Sex: Male
  Weight: 52 kg

DRUGS (8)
  1. TACROLIMUS [Suspect]
     Indication: RHEUMATOID ARTHRITIS
     Dosage: 1.5 MG, /D, ORAL
     Route: 048
     Dates: start: 20060613, end: 20060903
  2. TACROLIMUS [Suspect]
     Indication: RHEUMATOID ARTHRITIS
     Dosage: 1.5 MG, /D, ORAL
     Route: 048
     Dates: start: 20060912
  3. MEDROL [Suspect]
     Dosage: 4 MG, /D, ORAL
     Route: 048
  4. VOLTAREN [Concomitant]
  5. PROTECADIN (LAFUTIDINE) [Concomitant]
  6. RISEDRONATE SODIUM [Concomitant]
  7. VALTREX [Concomitant]
  8. VIDARABINE (VIDARABINE) [Concomitant]

REACTIONS (2)
  - HERPES ZOSTER [None]
  - URETHRAL STENOSIS [None]
